FAERS Safety Report 4707049-X (Version None)
Quarter: 2005Q3

REPORT INFORMATION
  Report Type: 
  Country: None (occurrence: None)
  Receive Date: 20050706
  Receipt Date: 20050624
  Transmission Date: 20060218
  Serious: Yes (Other)
  Sender: FDA-Public Use
  Company Number: US-KINGPHARMUSA00001-K200500883

PATIENT
  Age: 34 Year
  Sex: Male
  Weight: 120 kg

DRUGS (3)
  1. SKELAXIN [Suspect]
     Indication: BACK INJURY
     Dosage: 800 MG, QID
     Route: 048
     Dates: start: 20050414, end: 20050515
  2. VICODIN [Concomitant]
     Indication: BACK INJURY
     Dosage: 500 MG, PRN
     Route: 048
     Dates: start: 20050414
  3. FELDENE [Concomitant]
     Dosage: 20 MG, QD
     Dates: start: 20050414, end: 20050501

REACTIONS (15)
  - AMBLYOPIA [None]
  - ANXIETY [None]
  - ASTHENIA [None]
  - COLD SWEAT [None]
  - FEELING ABNORMAL [None]
  - HOT FLUSH [None]
  - HYPOAESTHESIA [None]
  - LIMB DISCOMFORT [None]
  - NERVOUSNESS [None]
  - PALPITATIONS [None]
  - SENSORY DISTURBANCE [None]
  - SOMNOLENCE [None]
  - TREMOR [None]
  - VISUAL ACUITY REDUCED [None]
  - VISUAL DISTURBANCE [None]
